FAERS Safety Report 8342038-8 (Version None)
Quarter: 2012Q2

REPORT INFORMATION
  Report Type: 
  Country: None (occurrence: None)
  Receive Date: 20120507
  Receipt Date: 20120425
  Transmission Date: 20120825
  Serious: Yes (Hospitalization, Other)
  Sender: FDA-Public Use
  Company Number: JP-PFIZER INC-2012087396

PATIENT
  Age: 91 Year
  Sex: Male

DRUGS (10)
  1. TRANDOLAPRIL [Concomitant]
     Indication: HYPERTENSION
     Dosage: UNK
     Route: 048
  2. LANSOPRAZOLE [Concomitant]
     Indication: GASTROOESOPHAGEAL REFLUX DISEASE
     Dosage: UNK
     Route: 048
  3. CELEBREX [Suspect]
     Indication: FEMUR FRACTURE
     Dosage: 100 MG BID
     Route: 048
     Dates: end: 20120323
  4. DIOVAN [Concomitant]
     Indication: HYPERTENSION
     Dosage: UNK
     Route: 048
  5. DIAZEPAM [Concomitant]
     Indication: INSOMNIA
     Dosage: UNK
     Route: 048
  6. SIGMART [Concomitant]
     Indication: ANGINA PECTORIS
     Dosage: UNK
     Route: 048
  7. AMLODIPINE [Concomitant]
     Indication: HYPERTENSION
     Dosage: UNK
  8. EPL CAP. [Concomitant]
     Indication: HEPATITIS C
     Dosage: UNK
  9. URSO 250 [Concomitant]
     Indication: HEPATITIS C
     Dosage: UNK
     Route: 048
  10. SELBEX [Concomitant]
     Indication: FEMUR FRACTURE
     Dosage: UNK
     Dates: end: 20120323

REACTIONS (1)
  - GRANULOCYTOPENIA [None]
